FAERS Safety Report 14329684 (Version 2)
Quarter: 2018Q1

REPORT INFORMATION
  Report Type: Spontaneous
  Country: ES (occurrence: ES)
  Receive Date: 20171227
  Receipt Date: 20180104
  Transmission Date: 20180509
  Serious: Yes (Hospitalization)
  Sender: FDA-Public Use
  Company Number: ES-PFIZER INC-2017545890

PATIENT
  Age: 49 Year
  Sex: Female

DRUGS (8)
  1. NORETHISTERONE [Concomitant]
     Active Substance: NORETHINDRONE
     Route: 065
  2. DIAZEPAM. [Concomitant]
     Active Substance: DIAZEPAM
     Dosage: 5 MG
     Route: 065
  3. BETAHISTINE [Concomitant]
     Active Substance: BETAHISTINE
     Dosage: 8 MG
     Route: 065
  4. ATORVASTATIN CALCIUM. [Concomitant]
     Active Substance: ATORVASTATIN CALCIUM
     Dosage: 20 MG
  5. BARNIDIPINE [Concomitant]
     Active Substance: BARNIDIPINE
     Dosage: 10 MG
  6. ACECLOFENAC [Concomitant]
     Active Substance: ACECLOFENAC
     Route: 065
  7. OMEPRAZOLE. [Suspect]
     Active Substance: OMEPRAZOLE
     Dosage: 40 MG
  8. METFORMIN [Concomitant]
     Active Substance: METFORMIN HYDROCHLORIDE
     Dosage: 850 MG

REACTIONS (1)
  - Hypomagnesaemia [Recovered/Resolved]
